FAERS Safety Report 5812116-3 (Version None)
Quarter: 2008Q3

REPORT INFORMATION
  Report Type: 
  Country: None (occurrence: None)
  Receive Date: 20080716
  Receipt Date: 20080707
  Transmission Date: 20090109
  Serious: Yes (Other)
  Sender: FDA-Public Use
  Company Number: IR-WATSON-2008-04047

PATIENT
  Age: 8 Year
  Sex: Female

DRUGS (1)
  1. TRELSTAR DEPOT [Suspect]
     Indication: PRECOCIOUS PUBERTY
     Dosage: 0.3 MG/KG, 1 IN 28 DAYS
     Route: 030

REACTIONS (1)
  - MYOCARDITIS [None]
